FAERS Safety Report 8419801-8 (Version None)
Quarter: 2012Q2

REPORT INFORMATION
  Report Type: 
  Country: None (occurrence: None)
  Receive Date: 20120323
  Receipt Date: 20111213
  Transmission Date: 20120825
  Serious: Yes (Hospitalization)
  Sender: FDA-Public Use
  Company Number: 163-21880-11121826

PATIENT
  Age: 80 Year
  Sex: Male
  Weight: 53.978 kg

DRUGS (1)
  1. REVLIMID [Suspect]
     Indication: MYELODYSPLASTIC SYNDROME
     Dosage: 5 MG, DAILY FOR 21D ON FOLLOWED BY 7D OFF, PO
     Route: 048
     Dates: start: 20111101

REACTIONS (3)
  - DECREASED APPETITE [None]
  - ASTHENIA [None]
  - FEBRILE NEUTROPENIA [None]
